FAERS Safety Report 4775067-1 (Version None)
Quarter: 2005Q3

REPORT INFORMATION
  Report Type: 
  Country: None (occurrence: None)
  Receive Date: 20050920
  Receipt Date: 20050909
  Transmission Date: 20060218
  Serious: Yes (Hospitalization)
  Sender: FDA-Public Use
  Company Number: WAES 0509USA00870

PATIENT
  Age: 68 Year
  Sex: Male

DRUGS (4)
  1. COZAAR [Suspect]
     Indication: HYPERTENSION
     Dosage: 50 MG/DAILY; PO
     Route: 048
     Dates: start: 20010106
  2. FLUTIDE [Concomitant]
  3. SEREVENT [Concomitant]
  4. AMBROXOL HYDROCHLORIDE [Concomitant]

REACTIONS (1)
  - PROSTATE CANCER [None]
